FAERS Safety Report 10966766 (Version 3)
Quarter: 2015Q2

REPORT INFORMATION
  Report Type: Report from Study
  Country: US (occurrence: US)
  Receive Date: 20150330
  Receipt Date: 20150522
  Transmission Date: 20150821
  Serious: Yes (Hospitalization)
  Sender: FDA-Public Use
  Company Number: US-NOVOPROD-442983

PATIENT
  Age: 74 Year
  Sex: Female
  Weight: 92.63 kg

DRUGS (2)
  1. IDEG 100U VIAL [Suspect]
     Active Substance: INSULIN DEGLUDEC
     Indication: TYPE 2 DIABETES MELLITUS
     Dosage: 68 U, QD
     Route: 058
     Dates: start: 20140818
  2. NOVORAPID [Suspect]
     Active Substance: INSULIN ASPART
     Indication: TYPE 2 DIABETES MELLITUS
     Dosage: 45 U, QD
     Route: 058
     Dates: start: 20140818

REACTIONS (2)
  - Cardiac failure congestive [Recovered/Resolved]
  - Left ventricular dysfunction [Recovered/Resolved]

NARRATIVE: CASE EVENT DATE: 20150313
